FAERS Safety Report 19205636 (Version 2)
Quarter: 2021Q2

REPORT INFORMATION
  Report Type: Spontaneous
  Country: US (occurrence: US)
  Receive Date: 20210503
  Receipt Date: 20210504
  Transmission Date: 20210717
  Serious: No
  Sender: FDA-Public Use
  Company Number: US-FARMAPROD-202012-1686

PATIENT
  Sex: Male

DRUGS (2)
  1. PRAMIPEXOLE. [Concomitant]
     Active Substance: PRAMIPEXOLE
     Dosage: EXTENDED RELEASE TABLET
  2. OXERVATE [Suspect]
     Active Substance: CENEGERMIN-BKBJ
     Indication: NEUROTROPHIC KERATOPATHY
     Route: 047
     Dates: start: 20201203

REACTIONS (7)
  - Eye pain [Not Recovered/Not Resolved]
  - Eye inflammation [Not Recovered/Not Resolved]
  - Product dose omission issue [Unknown]
  - Ocular discomfort [Unknown]
  - Eye irritation [Unknown]
  - Erythema of eyelid [Not Recovered/Not Resolved]
  - Product administration error [Unknown]
